FAERS Safety Report 10152697 (Version 2)
Quarter: 2014Q2

REPORT INFORMATION
  Report Type: Report from Study
  Country: NL (occurrence: NL)
  Receive Date: 20140505
  Receipt Date: 20140515
  Transmission Date: 20141212
  Serious: Yes (Life-Threatening)
  Sender: FDA-Public Use
  Company Number: NL-CELGENEUS-114-21880-14044669

PATIENT
  Age: 69 Year
  Sex: Male
  Weight: 67 kg

DRUGS (3)
  1. REVLIMID [Suspect]
     Indication: ACUTE MYELOID LEUKAEMIA
     Route: 048
     Dates: start: 20140403, end: 20140420
  2. DAUNOMYCIN [Suspect]
     Indication: ACUTE MYELOID LEUKAEMIA
     Route: 041
     Dates: start: 20140403, end: 20140405
  3. CYTARABINE [Suspect]
     Indication: ACUTE MYELOID LEUKAEMIA
     Route: 041
     Dates: start: 20140403, end: 20140409

REACTIONS (1)
  - Ileus [Recovered/Resolved]
